FAERS Safety Report 7253323-5 (Version None)
Quarter: 2011Q1

REPORT INFORMATION
  Report Type: 
  Country: None (occurrence: None)
  Receive Date: 20110129
  Receipt Date: 20100326
  Transmission Date: 20110831
  Serious: No
  Sender: FDA-Public Use
  Company Number: US-ABBOTT-10P-163-0635739-00

PATIENT
  Sex: Male
  Weight: 89.892 kg

DRUGS (1)
  1. HUMIRA [Suspect]
     Indication: PSORIASIS
     Route: 058
     Dates: start: 20091201

REACTIONS (2)
  - DRUG DOSE OMISSION [None]
  - PAIN IN EXTREMITY [None]
